FAERS Safety Report 4738502-0 (Version None)
Quarter: 2005Q3

REPORT INFORMATION
  Report Type: 
  Country: None (occurrence: None)
  Receive Date: 20050809
  Receipt Date: 20050729
  Transmission Date: 20060218
  Serious: Yes (Other)
  Sender: FDA-Public Use
  Company Number: US-JNJFOC-20050800924

PATIENT
  Age: 40 Year
  Sex: Female

DRUGS (7)
  1. EXTRA STRENGTH TYLENOL [Suspect]
  2. EXTRA STRENGTH TYLENOL [Suspect]
     Indication: PAIN
  3. TEGRETOL [Concomitant]
  4. DILANTIN [Concomitant]
  5. ZONOGRAN [Concomitant]
  6. IMITREX [Concomitant]
  7. SYNTHROID [Concomitant]

REACTIONS (6)
  - CONVULSION [None]
  - DYSGEUSIA [None]
  - PHARMACEUTICAL PRODUCT COMPLAINT [None]
  - REACTION TO PRESERVATIVES [None]
  - RETCHING [None]
  - VOMITING [None]
